FAERS Safety Report 8618231 (Version 3)
Quarter: 2012Q4

REPORT INFORMATION
  Report Type: Report from Study
  Country: DE (occurrence: DE)
  Receive Date: 20120615
  Receipt Date: 20120919
  Transmission Date: 20130627
  Serious: Yes (Life-Threatening, Hospitalization)
  Sender: FDA-Public Use
  Company Number: DE-TEVA-342179GER

PATIENT
  Age: 55 Year
  Sex: Female
  Weight: 83 kg

DRUGS (11)
  1. DOXORUBICIN [Suspect]
     Indication: BREAST CANCER
     Route: 042
     Dates: start: 20120314, end: 20120607
  2. CARBOPLATIN [Suspect]
     Indication: BREAST CANCER
     Route: 042
     Dates: start: 20120314, end: 20120607
  3. PACLITAXEL [Suspect]
     Indication: BREAST CANCER
     Route: 042
     Dates: start: 20120314, end: 20120607
  4. TRASTUZUMAB [Suspect]
     Indication: BREAST CANCER
     Route: 042
     Dates: start: 20120314, end: 20120607
  5. LAPATINIB [Suspect]
     Indication: BREAST CANCER
     Dosage: 500 Milligram Daily;
     Route: 048
     Dates: start: 20120314, end: 20120607
  6. ARANESP [Concomitant]
     Dates: start: 20120523
  7. RAMIPRIL 5/25 MG [Concomitant]
     Dosage: 1 Tablet Daily;
     Dates: start: 20100317, end: 201203
  8. RAMIPRIL 2.5/12.5 MG [Concomitant]
     Dosage: 1 Tablet Daily;
     Dates: start: 201203
  9. METOPROLOL [Concomitant]
     Dosage: 71.25 Milligram Daily;
     Dates: start: 20100317
  10. TREVILOR [Concomitant]
     Dosage: 37.5 Milligram Daily;
     Dates: start: 20100317, end: 201203
  11. TREVILOR [Concomitant]
     Dosage: 75 Milligram Daily;
     Dates: start: 201203

REACTIONS (1)
  - Pancytopenia [Recovered/Resolved]
